FAERS Safety Report 18177472 (Version 1)
Quarter: 2020Q3

REPORT INFORMATION
  Report Type: Spontaneous
  Country: TW (occurrence: TW)
  Receive Date: 20200820
  Receipt Date: 20200820
  Transmission Date: 20201103
  Serious: Yes (Life-Threatening, Other)
  Sender: FDA-Public Use
  Company Number: TW-SA-2020SA218340

PATIENT

DRUGS (2)
  1. NORMAL SALINE [Concomitant]
     Active Substance: SODIUM CHLORIDE
     Dosage: 250 ML
     Route: 065
  2. TAXOTERE [Suspect]
     Active Substance: DOCETAXEL
     Dosage: 100 MG IVD 1 HR TOTAL 255 ML, INFUSION RATE: 255 ML/HR
     Route: 042
     Dates: start: 20200807

REACTIONS (1)
  - Seizure [Unknown]

NARRATIVE: CASE EVENT DATE: 20200807
